FAERS Safety Report 9652495 (Version 2)
Quarter: 2013Q4

REPORT INFORMATION
  Report Type: Spontaneous
  Country: JP (occurrence: JP)
  Receive Date: 20131029
  Receipt Date: 20131101
  Transmission Date: 20140711
  Serious: Yes (Death)
  Sender: FDA-Public Use
  Company Number: JP-BAYER-2013-130045

PATIENT
  Sex: Male

DRUGS (4)
  1. XARELTO [Suspect]
     Indication: ATRIAL FIBRILLATION
     Dosage: UNK
     Route: 048
  2. XARELTO [Interacting]
     Indication: CEREBROVASCULAR ACCIDENT PROPHYLAXIS
  3. PLAVIX [Interacting]
     Route: 048
  4. ACETYLSALICYLIC ACID({=100 MG) [Interacting]
     Dosage: UNK
     Route: 048

REACTIONS (2)
  - Cerebral haemorrhage [Fatal]
  - Drug interaction [None]
